FAERS Safety Report 26024057 (Version 1)
Quarter: 2025Q4

REPORT INFORMATION
  Report Type: Spontaneous
  Country: EU (occurrence: EU)
  Receive Date: 20251111
  Receipt Date: 20251111
  Transmission Date: 20260118
  Serious: Yes (Hospitalization, Other)
  Sender: AUROBINDO
  Company Number: EU-LRB-01094100

PATIENT
  Age: 38 Year
  Sex: Male
  Weight: 74.4 kg

DRUGS (3)
  1. PERINDOPRIL [Suspect]
     Active Substance: PERINDOPRIL
     Indication: Hypertension
     Dosage: 6 MILLIGRAM, ONCE A DAY
     Route: 048
     Dates: start: 20221109, end: 20241217
  2. MYCOPHENOLATE MOFETIL [Concomitant]
     Active Substance: MYCOPHENOLATE MOFETIL
     Indication: Product used for unknown indication
     Dosage: 250 MILLIGRAM (CAPSULE, 250 MG (MILLIGRAM)
     Route: 048
  3. TACROLIMUS [Concomitant]
     Active Substance: TACROLIMUS
     Indication: Product used for unknown indication
     Dosage: 2 MILLIGRAM (MODIFIED-RELEASE CAPSULE, 2 MG (MILLIGRAM)
     Route: 048

REACTIONS (2)
  - Acute kidney injury [Recovered/Resolved]
  - Metabolic acidosis [Recovered/Resolved]
